FAERS Safety Report 18745311 (Version 2)
Quarter: 2021Q1

REPORT INFORMATION
  Report Type: Spontaneous
  Country: US (occurrence: US)
  Receive Date: 20210115
  Receipt Date: 20210227
  Transmission Date: 20210419
  Serious: Yes (Hospitalization)
  Sender: FDA-Public Use
  Company Number: US-TAKEDA-2021TUS000871

PATIENT
  Sex: Male
  Weight: 27 kg

DRUGS (11)
  1. GATTEX [Suspect]
     Active Substance: TEDUGLUTIDE\WATER
     Indication: SHORT-BOWEL SYNDROME
     Dosage: 01355 MILLILITER, QD
     Route: 065
  2. GATTEX [Suspect]
     Active Substance: TEDUGLUTIDE\WATER
     Dosage: 1.4 MILLIGRAM,QD
     Route: 058
     Dates: start: 20210125
  3. GATTEX [Suspect]
     Active Substance: TEDUGLUTIDE\WATER
     Dosage: 1.4 MILLIGRAM,QD
     Route: 058
     Dates: start: 20210125
  4. GATTEX [Suspect]
     Active Substance: TEDUGLUTIDE\WATER
     Dosage: 1.4 MILLIGRAM,QD
     Route: 058
     Dates: start: 20210125
  5. GATTEX [Suspect]
     Active Substance: TEDUGLUTIDE\WATER
     Indication: SHORT-BOWEL SYNDROME
     Dosage: 01355 MILLILITER, QD
     Route: 065
  6. LOPERAMIDE [Concomitant]
     Active Substance: LOPERAMIDE
     Indication: SHORT-BOWEL SYNDROME
     Dosage: 5 MILLILITER, TID
     Route: 065
  7. ALBUTEROL [SALBUTAMOL] [Concomitant]
     Active Substance: ALBUTEROL
     Indication: ASTHMA
     Dosage: UNK, Q4HR
     Route: 065
  8. FLUTICASONE. [Suspect]
     Active Substance: FLUTICASONE
     Indication: ASTHMA
     Dosage: UNK, BID
     Route: 065
  9. GATTEX [Suspect]
     Active Substance: TEDUGLUTIDE\WATER
     Indication: SHORT-BOWEL SYNDROME
     Dosage: 01355 MILLILITER, QD
     Route: 065
  10. GATTEX [Suspect]
     Active Substance: TEDUGLUTIDE\WATER
     Indication: SHORT-BOWEL SYNDROME
     Dosage: 01355 MILLILITER, QD
     Route: 065
  11. GATTEX [Suspect]
     Active Substance: TEDUGLUTIDE\WATER
     Dosage: 1.4 MILLIGRAM,QD
     Route: 058
     Dates: start: 20210125

REACTIONS (1)
  - Fungal infection [Recovered/Resolved]
